FAERS Safety Report 20878408 (Version 2)
Quarter: 2024Q1

REPORT INFORMATION
  Report Type: Spontaneous
  Country: US (occurrence: US)
  Receive Date: 20220526
  Receipt Date: 20240212
  Transmission Date: 20240410
  Serious: No
  Sender: FDA-Public Use
  Company Number: US-PFIZER INC-202200490174

PATIENT
  Age: 84 Year
  Sex: Female
  Weight: 63.96 kg

DRUGS (9)
  1. VYNDAMAX [Suspect]
     Active Substance: TAFAMIDIS
     Indication: Cardiac amyloidosis
     Dosage: 61 MG, 1X/DAY (EVENING AROUND 7PM)
     Dates: start: 2021
  2. VYNDAMAX [Suspect]
     Active Substance: TAFAMIDIS
     Dosage: TAKE 1 CAPSULE (61 MG TOTAL) BY MOUTH DAILY
     Route: 048
     Dates: start: 20240201
  3. ACEBUTOLOL [Concomitant]
     Active Substance: ACEBUTOLOL
     Dosage: 200 MG
  4. ALPRAZOLAM [Concomitant]
     Active Substance: ALPRAZOLAM
     Dosage: 0.5 MG
  5. NEXIUM I.V. [Concomitant]
     Active Substance: ESOMEPRAZOLE SODIUM
     Dosage: 40 MG
  6. NYSTATIN [Concomitant]
     Active Substance: NYSTATIN
     Dosage: NYSTATIN CREAM 100000
  7. TORSEMIDE [Concomitant]
     Active Substance: TORSEMIDE
     Dosage: 10 MG
  8. TRAMADOL HCL [Concomitant]
     Active Substance: TRAMADOL HYDROCHLORIDE
     Dosage: 50 MG
  9. XARELTO [Concomitant]
     Active Substance: RIVAROXABAN
     Dosage: 15 MG

REACTIONS (7)
  - Product use complaint [Not Recovered/Not Resolved]
  - Erythema [Not Recovered/Not Resolved]
  - Pruritus [Not Recovered/Not Resolved]
  - Urticaria [Not Recovered/Not Resolved]
  - Vision blurred [Not Recovered/Not Resolved]
  - Dry eye [Not Recovered/Not Resolved]
  - Rash [Not Recovered/Not Resolved]

NARRATIVE: CASE EVENT DATE: 20211201
